FAERS Safety Report 18438119 (Version 5)
Quarter: 2021Q4

REPORT INFORMATION
  Report Type: Spontaneous
  Country: None (occurrence: US)
  Receive Date: 20201029
  Receipt Date: 20211124
  Transmission Date: 20220303
  Serious: No
  Sender: FDA-Public Use
  Company Number: US-AKCEA THERAPEUTICS-2020IS001459

PATIENT
  Age: 73 Year
  Sex: Male
  Weight: 78.182 kg

DRUGS (9)
  1. TEGSEDI [Suspect]
     Active Substance: INOTERSEN SODIUM
     Indication: Hereditary neuropathic amyloidosis
     Route: 058
     Dates: start: 20191213
  2. DEVICE [Suspect]
     Active Substance: DEVICE
  3. VIAGRA [Concomitant]
     Active Substance: SILDENAFIL CITRATE
     Route: 065
  4. LIPITOR [Concomitant]
     Active Substance: ATORVASTATIN CALCIUM
     Route: 065
  5. OMEPRAZOLE [Concomitant]
     Active Substance: OMEPRAZOLE
     Route: 065
  6. THIAMINE HYDROCHLORIDE [Concomitant]
     Active Substance: THIAMINE HYDROCHLORIDE
     Route: 065
  7. PYRIDOXINE [Concomitant]
     Active Substance: PYRIDOXINE
     Route: 065
  8. METOPROLOL SUCCINATE [Concomitant]
     Active Substance: METOPROLOL SUCCINATE
     Route: 065
  9. ELIQUIS [Concomitant]
     Active Substance: APIXABAN
     Route: 065

REACTIONS (10)
  - Urine protein/creatinine ratio increased [Not Recovered/Not Resolved]
  - Platelet count decreased [Not Recovered/Not Resolved]
  - Blood bilirubin increased [Unknown]
  - Protein urine present [Not Recovered/Not Resolved]
  - Exposure to SARS-CoV-2 [Unknown]
  - Blood creatine increased [Unknown]
  - Glomerular filtration rate decreased [Unknown]
  - Gait disturbance [Unknown]
  - Disease progression [Unknown]
  - Red blood cells urine positive [Unknown]

NARRATIVE: CASE EVENT DATE: 20200902
